FAERS Safety Report 26009849 (Version 2)
Quarter: 2025Q4

REPORT INFORMATION
  Report Type: Spontaneous
  Country: EU (occurrence: EU)
  Receive Date: 20251107
  Receipt Date: 20251211
  Transmission Date: 20260118
  Serious: Yes (Other)
  Sender: MERCK SHARP & DOHME LLC
  Company Number: EU-009507513-2345885

PATIENT
  Sex: Female

DRUGS (6)
  1. PEMBROLIZUMAB [Suspect]
     Active Substance: PEMBROLIZUMAB
     Indication: Triple negative breast cancer
     Dosage: 4 CYCLES; 200 MG, Q3W
     Dates: start: 20250306, end: 20250508
  2. PEMBROLIZUMAB [Suspect]
     Active Substance: PEMBROLIZUMAB
     Indication: Triple negative breast cancer
     Dosage: 3 CYCLES; 200 MG, Q3W
     Dates: start: 20250603, end: 20250804
  3. CYCLOPHOSPHAMIDE [Suspect]
     Active Substance: CYCLOPHOSPHAMIDE
     Indication: Triple negative breast cancer
     Dosage: 4 CYCLES; 600 MG/M? Q3W
     Dates: start: 20250306, end: 20250508
  4. EPIRUBICIN [Suspect]
     Active Substance: EPIRUBICIN
     Indication: Triple negative breast cancer
     Dosage: 4 CYCLES; 90 MG/M2, Q3W
     Dates: start: 20250306, end: 20250508
  5. CARBOPLATIN [Suspect]
     Active Substance: CARBOPLATIN
     Dosage: 8 TIMES, AUC 2, WEEKLY
     Dates: start: 20250603, end: 20250804
  6. PACLITAXEL [Suspect]
     Active Substance: PACLITAXEL
     Dosage: 8 TIMES; WEEKLY 80 MG/ M?
     Dates: start: 20250603, end: 20250804

REACTIONS (2)
  - Leukopenia [Unknown]
  - Neutropenia [Unknown]

NARRATIVE: CASE EVENT DATE: 20250101
